FAERS Safety Report 8204815-3 (Version None)
Quarter: 2012Q1

REPORT INFORMATION
  Report Type: 
  Country: None (occurrence: None)
  Receive Date: 20120313
  Receipt Date: 20120304
  Transmission Date: 20120608
  Serious: Yes (Hospitalization, Other)
  Sender: FDA-Public Use
  Company Number: SK-AMGEN-SVKSP2011031475

PATIENT
  Age: 73 Year
  Sex: Female

DRUGS (3)
  1. PROLIA [Suspect]
     Indication: OSTEOPOROSIS POSTMENOPAUSAL
     Dosage: 60 MG, Q6MO
     Dates: start: 20110615
  2. CORTICOSTEROIDS [Concomitant]
     Dosage: UNK
     Route: 055
  3. STATIN                             /00848101/ [Concomitant]
     Dosage: UNK

REACTIONS (6)
  - LIVER FUNCTION TEST ABNORMAL [None]
  - CHILLS [None]
  - PYREXIA [None]
  - HAEMATURIA [None]
  - WHITE BLOOD CELL COUNT INCREASED [None]
  - LUNG DISORDER [None]
